FAERS Safety Report 23865617 (Version 1)
Quarter: 2024Q2

REPORT INFORMATION
  Report Type: Report from Study
  Country: US (occurrence: US)
  Receive Date: 20240517
  Receipt Date: 20240517
  Transmission Date: 20240716
  Serious: Yes (Other)
  Sender: FDA-Public Use
  Company Number: US-ARGENX-2024-ARGX-US003164

PATIENT

DRUGS (1)
  1. VYVGART [Suspect]
     Active Substance: EFGARTIGIMOD ALFA-FCAB
     Indication: Myasthenia gravis
     Dosage: 1180 MG, 1/WEEK, FOR 4 WEEKS, SDV 180/2000MG
     Route: 042
     Dates: start: 202207

REACTIONS (1)
  - Myasthenia gravis [Unknown]
